FAERS Safety Report 5830719-7 (Version None)
Quarter: 2008Q3

REPORT INFORMATION
  Report Type: 
  Country: None (occurrence: None)
  Receive Date: 20080801
  Receipt Date: 20071019
  Transmission Date: 20090109
  Serious: No
  Sender: FDA-Public Use
  Company Number: US-BRISTOL-MYERS SQUIBB COMPANY-13948666

PATIENT
  Age: 86 Year
  Sex: Female
  Weight: 83 kg

DRUGS (9)
  1. COUMADIN [Suspect]
     Indication: CARDIAC FAILURE CONGESTIVE
     Route: 048
     Dates: start: 20070401
  2. LISINOPRIL [Suspect]
  3. DIGOXIN [Suspect]
     Dosage: USE TO TAKE ON MONDAY, WEDNESDAY AND FRIDAY.
     Route: 048
     Dates: start: 20071002, end: 20071017
  4. FUROSEMIDE [Concomitant]
  5. SPIRONOLACTONE [Concomitant]
  6. ASPIRIN [Concomitant]
     Route: 048
  7. INDOMETHACIN [Concomitant]
  8. ZOCOR [Concomitant]
  9. ALLOPURINOL [Concomitant]

REACTIONS (5)
  - FALL [None]
  - HYPOAESTHESIA [None]
  - PAIN [None]
  - PARAESTHESIA [None]
  - SWELLING [None]
